FAERS Safety Report 15409324 (Version 10)
Quarter: 2019Q2

REPORT INFORMATION
  Report Type: Spontaneous
  Country: US (occurrence: US)
  Receive Date: 20180920
  Receipt Date: 20190509
  Transmission Date: 20190711
  Serious: Yes (Death, Hospitalization, Other)
  Sender: FDA-Public Use
  Company Number: US-GLAXOSMITHKLINE-US2018GSK170573

PATIENT
  Age: 65 Year
  Sex: Female

DRUGS (13)
  1. FLOLAN DILUENT PH 12 [Suspect]
     Active Substance: GLYCINE\MANNITOL\SODIUM CHLORIDE
     Indication: PULMONARY ARTERIAL HYPERTENSION
     Dosage: UNK
     Route: 042
     Dates: start: 20161101
  2. FLOLAN DILUENT PH 12 [Suspect]
     Active Substance: GLYCINE\MANNITOL\SODIUM CHLORIDE
     Dosage: UNK, CO
     Route: 042
     Dates: start: 20161101
  3. COUMADIN [Concomitant]
     Active Substance: WARFARIN SODIUM
     Indication: PRODUCT USED FOR UNKNOWN INDICATION
  4. FLOLAN [Suspect]
     Active Substance: EPOPROSTENOL SODIUM
     Dosage: 32 DF, CO
     Route: 042
  5. FLOLAN [Suspect]
     Active Substance: EPOPROSTENOL SODIUM
     Dosage: 32 DF, CO
     Route: 042
  6. FLOLAN [Suspect]
     Active Substance: EPOPROSTENOL SODIUM
     Dosage: 32 UNK, UNK
     Route: 042
     Dates: start: 20010502
  7. FLOLAN [Suspect]
     Active Substance: EPOPROSTENOL SODIUM
     Dosage: 32NG/KG/MIN
     Route: 042
     Dates: start: 20010502
  8. FLOLAN [Suspect]
     Active Substance: EPOPROSTENOL SODIUM
     Dosage: 32 DF, CO
     Route: 042
     Dates: start: 20010505
  9. FLOLAN DILUENT PH 12 [Suspect]
     Active Substance: GLYCINE\MANNITOL\SODIUM CHLORIDE
     Dosage: UNK
  10. FLOLAN DILUENT PH 12 [Suspect]
     Active Substance: GLYCINE\MANNITOL\SODIUM CHLORIDE
     Dosage: UNK
     Route: 042
     Dates: start: 20161101
  11. FLOLAN [Suspect]
     Active Substance: EPOPROSTENOL SODIUM
     Indication: PULMONARY ARTERIAL HYPERTENSION
     Dosage: 30 NG/KG/MIN, CO
     Route: 042
     Dates: start: 20010502
  12. FLOLAN DILUENT PH 12 [Suspect]
     Active Substance: GLYCINE\MANNITOL\SODIUM CHLORIDE
     Dosage: UNK, CO
     Route: 042
     Dates: start: 20161101
  13. REVATIO [Concomitant]
     Active Substance: SILDENAFIL CITRATE
     Indication: PRODUCT USED FOR UNKNOWN INDICATION

REACTIONS (19)
  - Palpitations [Unknown]
  - Malaise [Unknown]
  - Headache [Unknown]
  - Gastrointestinal tract irritation [Unknown]
  - Dyspnoea [Recovering/Resolving]
  - Acute respiratory failure [Unknown]
  - Infection [Unknown]
  - Weight decreased [Unknown]
  - Asthenia [Unknown]
  - Hospitalisation [Not Recovered/Not Resolved]
  - Pyrexia [Unknown]
  - Pulmonary oedema [Unknown]
  - Central venous catheterisation [Unknown]
  - Central venous catheter removal [Unknown]
  - Device issue [Unknown]
  - Decreased appetite [Unknown]
  - Pulmonary arterial hypertension [Fatal]
  - Nausea [Unknown]
  - Gallbladder disorder [Unknown]

NARRATIVE: CASE EVENT DATE: 201809
